FAERS Safety Report 15356999 (Version 5)
Quarter: 2018Q3

REPORT INFORMATION
  Report Type: Spontaneous
  Country: RO (occurrence: US)
  Receive Date: 20180906
  Receipt Date: 20180920
  Transmission Date: 20181010
  Serious: Yes (Death)
  Sender: FDA-Public Use
  Company Number: RO-PFIZER INC-2018346927

PATIENT
  Age: 19 Year
  Sex: Male

DRUGS (4)
  1. DEXTROMETHORPHAN [Suspect]
     Active Substance: DEXTROMETHORPHAN
     Indication: SUBSTANCE USE
     Dosage: UNK
  2. BENADRYL [Suspect]
     Active Substance: DIPHENHYDRAMINE HYDROCHLORIDE
     Dosage: UNK
  3. DEXTROMETHORPHAN HYDROBROMIDE. [Suspect]
     Active Substance: DEXTROMETHORPHAN HYDROBROMIDE
     Indication: SUBSTANCE USE
     Dosage: UNK
  4. ROBITUSSIN MEDI?SOOTHERS COUGH DM [Suspect]
     Active Substance: DEXTROMETHORPHAN HYDROBROMIDE\MENTHOL
     Dosage: UNK

REACTIONS (3)
  - Pulmonary congestion [Fatal]
  - Toxicity to various agents [Fatal]
  - Drug abuse [Fatal]

NARRATIVE: CASE EVENT DATE: 2009
